FAERS Safety Report 16230854 (Version 2)
Quarter: 2019Q2

REPORT INFORMATION
  Report Type: Spontaneous
  Country: US (occurrence: US)
  Receive Date: 20190423
  Receipt Date: 20190506
  Transmission Date: 20190711
  Serious: No
  Sender: FDA-Public Use
  Company Number: US-ELI_LILLY_AND_COMPANY-US201904005084

PATIENT
  Sex: Male

DRUGS (5)
  1. TYVASO [Suspect]
     Active Substance: TREPROSTINIL
     Dosage: 4 BREATHS (0.6 MG/ML), 4 TIMES A DAY
  2. TYVASO [Suspect]
     Active Substance: TREPROSTINIL
     Indication: PULMONARY ARTERIAL HYPERTENSION
     Dosage: 5 BREATHS (0.6 MG/ML), 4 TIMES A DAY
     Route: 055
     Dates: start: 20190305
  3. TADALAFIL. [Suspect]
     Active Substance: TADALAFIL
     Dosage: 20 MG, HALF AT MORNING AND HALF IN AFTERNOON
     Route: 065
     Dates: start: 20190306
  4. TADALAFIL. [Suspect]
     Active Substance: TADALAFIL
     Indication: PULMONARY ARTERIAL HYPERTENSION
     Dosage: 20 MG, BID
     Route: 065
  5. TYVASO [Suspect]
     Active Substance: TREPROSTINIL
     Dosage: 24 UG, DAILY
     Route: 048

REACTIONS (6)
  - Wrong technique in product usage process [Unknown]
  - Oxygen saturation decreased [Unknown]
  - Asthenia [Unknown]
  - Exercise tolerance decreased [Unknown]
  - Blood pressure decreased [Unknown]
  - Diarrhoea [Unknown]
